FAERS Safety Report 8586990-4 (Version None)
Quarter: 2012Q3

REPORT INFORMATION
  Report Type: 
  Country: None (occurrence: None)
  Receive Date: 20120810
  Receipt Date: 20120806
  Transmission Date: 20120928
  Serious: Yes (Death, Hospitalization)
  Sender: FDA-Public Use
  Company Number: PL-CELGENEUS-129-CCAZA-12063907

PATIENT
  Sex: Male
  Weight: 75 kg

DRUGS (28)
  1. DIAPREL MR [Concomitant]
     Indication: TYPE 2 DIABETES MELLITUS
     Dosage: 60 MILLIGRAM
     Route: 048
     Dates: start: 20120130
  2. FUROSEMIDE [Concomitant]
     Indication: PROPHYLAXIS
     Dosage: 20 MILLIGRAM
     Route: 041
     Dates: start: 20120529, end: 20120530
  3. FORMETIC [Concomitant]
     Indication: TYPE 2 DIABETES MELLITUS
     Dosage: 1500 MILLIGRAM
     Route: 048
     Dates: start: 20120130
  4. FLUCONAZOLE [Concomitant]
     Indication: ORAL CANDIDIASIS
     Dosage: 200 MILLIGRAM
     Route: 048
     Dates: start: 20120618
  5. TRANEXAMIC ACID [Concomitant]
     Dosage: 1500 MILLIGRAM
     Route: 048
     Dates: start: 20120618
  6. POLYELECTROLYTE SOLUTION [Concomitant]
     Indication: CACHEXIA
     Dosage: 500 MILLILITER
     Route: 041
     Dates: start: 20120529, end: 20120530
  7. POLYELECTROLYTE SOLUTION [Concomitant]
     Dosage: 1000 MILLILITER
     Route: 041
     Dates: start: 20120625, end: 20120625
  8. NATRIUM CHLORATUM [Concomitant]
     Dosage: 20 MILLIGRAM/MILLILITERS
     Route: 041
     Dates: start: 20120606, end: 20120617
  9. NUTRIDRINK [Concomitant]
     Indication: CACHEXIA
     Dosage: 180 MILLIGRAM/MILLILITERS
     Route: 048
     Dates: start: 20120310
  10. ALBUMIN (HUMAN) [Concomitant]
     Indication: CACHEXIA
     Dosage: 100 MILLIGRAM/MILLILITERS
     Route: 041
     Dates: start: 20120529, end: 20120530
  11. MEGASTEROL [Concomitant]
     Indication: CACHEXIA
     Dosage: 40 MILLIGRAM/MILLILITERS
     Route: 048
     Dates: start: 20120322
  12. FLUCONAZOLE [Concomitant]
     Indication: PNEUMONIA
     Dosage: 200 MILLIGRAM
     Route: 041
     Dates: start: 20120323
  13. FLUCONAZOLE [Concomitant]
     Dosage: 200 MILLIGRAM
     Route: 048
     Dates: start: 20120625, end: 20120701
  14. CITALOPRAM HYDROBROMIDE [Concomitant]
     Indication: DEPRESSION
     Dosage: 20 MILLIGRAM/MILLILITERS
     Route: 048
     Dates: start: 20120413
  15. POLYELECTROLYTE SOLUTION [Concomitant]
     Dosage: 500 MILLILITER
     Route: 041
     Dates: start: 20120626, end: 20120701
  16. POLYELECTROLYTE SOLUTION [Concomitant]
     Dosage: 1000 MILLILITER
     Route: 041
     Dates: start: 20120606, end: 20120617
  17. ALBUMIN (HUMAN) [Concomitant]
     Dosage: 100 MILLIGRAM/MILLILITERS
     Route: 041
     Dates: start: 20120625, end: 20120627
  18. DROTAVERINUM [Concomitant]
     Dosage: 240 MILLIGRAM/MILLILITERS
     Route: 048
     Dates: start: 20120609, end: 20120609
  19. RED BLOOD CELLS [Concomitant]
     Indication: ACUTE MYELOID LEUKAEMIA
     Route: 065
  20. OMEPRAZOLE [Concomitant]
     Dosage: 20 MILLIGRAM/MILLILITERS
     Route: 048
     Dates: start: 20120609, end: 20120609
  21. ETAMSYLATE [Concomitant]
     Dosage: 1500 MILLIGRAM
     Route: 048
     Dates: start: 20120618
  22. AZACITIDINE [Suspect]
     Indication: ACUTE MYELOID LEUKAEMIA
     Route: 065
     Dates: start: 20120202, end: 20120208
  23. PLATELETS [Concomitant]
     Indication: ACUTE MYELOID LEUKAEMIA
     Route: 065
  24. ONDANSETRON [Concomitant]
     Dosage: 8 MILLIGRAM
     Route: 041
     Dates: start: 20120611, end: 20120617
  25. MAGNESIUM SULFURICUM [Concomitant]
     Indication: CACHEXIA
     Dosage: 2 MILLIGRAM
     Route: 041
     Dates: start: 20120625, end: 20120626
  26. NATRIUM CHLORATUM [Concomitant]
     Indication: CACHEXIA
     Dosage: 1000 MILLIGRAM/MILLILITERS
     Route: 041
     Dates: start: 20120606, end: 20120617
  27. POTASSIUM CHLORIDE [Concomitant]
     Indication: CACHEXIA
     Dosage: 80 OTHER
     Route: 041
     Dates: start: 20120611, end: 20120617
  28. POTASSIUM CHLORIDE [Concomitant]
     Dosage: 40 OTHER
     Route: 041
     Dates: start: 20120625, end: 20120701

REACTIONS (1)
  - PNEUMONIA [None]
